FAERS Safety Report 7337252-4 (Version None)
Quarter: 2011Q1

REPORT INFORMATION
  Report Type: 
  Country: None (occurrence: None)
  Receive Date: 20110224
  Receipt Date: 20110214
  Transmission Date: 20110831
  Serious: Yes (Disabling)
  Sender: FDA-Public Use
  Company Number: 2011MA001364

PATIENT
  Sex: Female

DRUGS (1)
  1. METOCLOPRAMIDE [Suspect]
     Dosage: PO
     Route: 048
     Dates: start: 20081201, end: 20090101

REACTIONS (10)
  - ECONOMIC PROBLEM [None]
  - ACTIVITIES OF DAILY LIVING IMPAIRED [None]
  - ANXIETY [None]
  - INJURY [None]
  - MENTAL DISORDER [None]
  - ASTHENIA [None]
  - DYSKINESIA [None]
  - EMOTIONAL DISTRESS [None]
  - TREMOR [None]
  - EXTRAPYRAMIDAL DISORDER [None]
